FAERS Safety Report 5786577-2 (Version None)
Quarter: 2008Q2

REPORT INFORMATION
  Report Type: 
  Country: None (occurrence: None)
  Receive Date: 20080624
  Receipt Date: 20080612
  Transmission Date: 20081010
  Serious: Yes (Congenital Anomaly, Other)
  Sender: FDA-Public Use
  Company Number: US-PFIZER INC-2008049865

PATIENT
  Sex: Male
  Weight: 0.1 kg

DRUGS (1)
  1. ZOLOFT [Suspect]
     Indication: DEPRESSION

REACTIONS (10)
  - BRADYCARDIA FOETAL [None]
  - CEPHALHAEMATOMA [None]
  - CRANIOSYNOSTOSIS [None]
  - DEVELOPMENTAL DELAY [None]
  - DRUG EXPOSURE DURING PREGNANCY [None]
  - HEAD DEFORMITY [None]
  - MOVEMENT DISORDER [None]
  - NERVOUSNESS [None]
  - PREMATURE BABY [None]
  - RESPIRATORY DISTRESS [None]
